FAERS Safety Report 15720332 (Version 1)
Quarter: 2018Q4

REPORT INFORMATION
  Report Type: Spontaneous
  Country: IT (occurrence: IT)
  Receive Date: 20181213
  Receipt Date: 20181213
  Transmission Date: 20190205
  Serious: Yes (Hospitalization)
  Sender: FDA-Public Use
  Company Number: IT-METUCHEN-STN-2018-0859

PATIENT
  Age: 73 Year
  Sex: Male

DRUGS (5)
  1. DOXAZOSIN [Suspect]
     Active Substance: DOXAZOSIN\DOXAZOSIN MESYLATE
     Indication: HYPERTENSION
     Dosage: 2MG DAILY
     Route: 048
     Dates: start: 20170101
  2. SPEDRA (AVANAFIL) TABLETS [Suspect]
     Active Substance: AVANAFIL
     Indication: ERECTILE DYSFUNCTION
     Dosage: 100MG AS NEEDED
     Route: 048
  3. PLAVIX [Concomitant]
     Active Substance: CLOPIDOGREL BISULFATE
     Indication: PRODUCT USED FOR UNKNOWN INDICATION
  4. NEBIVOLOL. [Concomitant]
     Active Substance: NEBIVOLOL
     Indication: PRODUCT USED FOR UNKNOWN INDICATION
     Dosage: 5MG
  5. AMLODIPINE [Concomitant]
     Active Substance: AMLODIPINE BESYLATE
     Indication: PRODUCT USED FOR UNKNOWN INDICATION
     Dosage: 10MG

REACTIONS (6)
  - Hypotension [Unknown]
  - Diarrhoea [Unknown]
  - Nausea [Unknown]
  - Drug interaction [Unknown]
  - Malaise [None]
  - Presyncope [Unknown]

NARRATIVE: CASE EVENT DATE: 20170626
